FAERS Safety Report 10945324 (Version 1)
Quarter: 2015Q1

REPORT INFORMATION
  Report Type: Spontaneous
  Country: US (occurrence: US)
  Receive Date: 20150323
  Receipt Date: 20150323
  Transmission Date: 20150721
  Serious: Yes (Death, Life-Threatening, Congenital Anomaly, Other)
  Sender: FDA-Public Use
  Company Number: US-ELI_LILLY_AND_COMPANY-US201503007447

PATIENT

DRUGS (1)
  1. PROZAC [Suspect]
     Active Substance: FLUOXETINE HYDROCHLORIDE
     Indication: DEPRESSION
     Dosage: 40 MG, QD
     Route: 064

REACTIONS (11)
  - Large for dates baby [Unknown]
  - Foetal exposure during pregnancy [Recovered/Resolved]
  - Truncus arteriosus persistent [Unknown]
  - Premature baby [Unknown]
  - Fallot^s tetralogy [Fatal]
  - Respiratory failure [Unknown]
  - Polyhydramnios [Unknown]
  - Foetal hypokinesia [Unknown]
  - Pulmonary valve stenosis [Unknown]
  - Pulmonary artery atresia [Unknown]
  - Ventricular septal defect [Unknown]
